FAERS Safety Report 10575290 (Version 1)
Quarter: 2014Q4

REPORT INFORMATION
  Report Type: Spontaneous
  Country: DE (occurrence: None)
  Receive Date: 20141107
  Receipt Date: 20141107
  Transmission Date: 20150529
  Serious: Yes (Other)
  Sender: FDA-Public Use
  Company Number: DE-DEXPHARM-20140758

PATIENT
  Age: 74 Year
  Sex: Male

DRUGS (3)
  1. DICLOFENAC (DICLOFENAC) [Suspect]
     Active Substance: DICLOFENAC SODIUM
     Indication: BACK PAIN
     Route: 048
  2. SUTENT [Suspect]
     Active Substance: SUNITINIB MALATE
     Indication: RENAL CELL CARCINOMA
     Dosage: 50 MG MILLGRAMS(S), ORAL
     Route: 048
     Dates: start: 201310, end: 20140505
  3. XGEVA [Concomitant]
     Active Substance: DENOSUMAB

REACTIONS (2)
  - Renal impairment [None]
  - Nephrotic syndrome [None]

NARRATIVE: CASE EVENT DATE: 20140528
